FAERS Safety Report 6419689-0 (Version None)
Quarter: 2009Q4

REPORT INFORMATION
  Report Type: 
  Country: None (occurrence: None)
  Receive Date: 20091029
  Receipt Date: 20091021
  Transmission Date: 20100525
  Serious: Yes (Other)
  Sender: FDA-Public Use
  Company Number: B0597136A

PATIENT
  Sex: Female

DRUGS (8)
  1. PAXIL [Suspect]
     Indication: SOMATOFORM DISORDER
     Route: 048
     Dates: start: 20080627
  2. TRYPTANOL [Concomitant]
     Indication: DRUG USE FOR UNKNOWN INDICATION
     Route: 048
     Dates: start: 20090916
  3. BLOPRESS [Concomitant]
     Indication: HYPERTENSION
     Dosage: 8MG PER DAY
     Route: 048
  4. CALTAN [Concomitant]
     Indication: BLOOD PHOSPHORUS
     Dosage: 1500MG PER DAY
     Route: 048
  5. ZANTAC [Concomitant]
     Dosage: 300MG PER DAY
     Route: 048
  6. HALCION [Concomitant]
     Indication: INSOMNIA
     Dosage: .125MG PER DAY
     Route: 048
  7. MYSLEE [Concomitant]
     Indication: INSOMNIA
     Dosage: 5MG PER DAY
     Route: 048
  8. ROHYPNOL [Concomitant]
     Indication: INSOMNIA
     Dosage: .5MG PER DAY
     Route: 048

REACTIONS (10)
  - BLOOD ALBUMIN DECREASED [None]
  - BLOOD CHLORIDE INCREASED [None]
  - BLOOD CREATININE INCREASED [None]
  - BLOOD GLUCOSE INCREASED [None]
  - BLOOD PHOSPHORUS INCREASED [None]
  - BLOOD POTASSIUM INCREASED [None]
  - BLOOD UREA INCREASED [None]
  - BLOOD URIC ACID INCREASED [None]
  - HALLUCINATION, VISUAL [None]
  - RED BLOOD CELL COUNT INCREASED [None]
